FAERS Safety Report 10252761 (Version 2)
Quarter: 2014Q2

REPORT INFORMATION
  Report Type: Report from Study
  Country: US (occurrence: US)
  Receive Date: 20140623
  Receipt Date: 20140623
  Transmission Date: 20141212
  Serious: Yes (Hospitalization)
  Sender: FDA-Public Use
  Company Number: US-SA-2014SA057386

PATIENT
  Age: 57 Year
  Sex: Female

DRUGS (12)
  1. LANTUS SOLOSTAR [Suspect]
     Indication: TYPE 2 DIABETES MELLITUS
     Dosage: 15 UNITS IN THE AM AND 7 UNITS IN THE PM
     Route: 065
     Dates: start: 20140311
  2. LANTUS SOLOSTAR [Suspect]
     Indication: TYPE 2 DIABETES MELLITUS
     Dosage: 20 UNITS IN THE AM AND 15 UNITS IN THE PM
     Route: 065
     Dates: start: 20140320
  3. LANTUS SOLOSTAR [Suspect]
     Indication: TYPE 2 DIABETES MELLITUS
     Route: 065
     Dates: start: 20140502
  4. GLYBURIDE [Concomitant]
     Indication: DIABETES MELLITUS
     Dates: start: 2012
  5. ATENOLOL [Concomitant]
     Indication: HYPERTENSION
     Dosage: 100-25
     Dates: start: 2010
  6. XANAX [Concomitant]
     Indication: ANXIETY
     Dates: start: 2002
  7. XANAX [Concomitant]
     Indication: INSOMNIA
     Dates: start: 2002
  8. MECLIZINE [Concomitant]
     Indication: VERTIGO
     Dosage: 3 TIMES PER DAY AS NEEDED
     Dates: start: 2013
  9. FIORINAL [Concomitant]
     Indication: MIGRAINE
     Dates: start: 2014
  10. HYDROCODONE [Concomitant]
     Indication: ARTHRITIS
  11. SOMA [Concomitant]
     Indication: BACK PAIN
  12. SOLOSTAR [Concomitant]

REACTIONS (8)
  - Hospitalisation [Unknown]
  - Blood glucose increased [Recovered/Resolved]
  - Migraine [Not Recovered/Not Resolved]
  - Headache [Not Recovered/Not Resolved]
  - Vertigo [Recovered/Resolved]
  - Dizziness [Recovered/Resolved]
  - Drug dose omission [Unknown]
  - Off label use [Unknown]
